FAERS Safety Report 6092700-5 (Version None)
Quarter: 2009Q1

REPORT INFORMATION
  Report Type: 
  Country: None (occurrence: None)
  Receive Date: 20090225
  Receipt Date: 20090218
  Transmission Date: 20090719
  Serious: No
  Sender: FDA-Public Use
  Company Number: JP-EISAI MEDICAL RESEARCH-E2090-00667-SPO-JP

PATIENT
  Age: 40 Year
  Sex: Female

DRUGS (8)
  1. EXCEGRAN [Suspect]
     Indication: EPILEPSY
     Route: 048
  2. EXCEGRAN [Suspect]
     Route: 048
  3. ALEVIATIN [Concomitant]
  4. PHENOBARBITAL TAB [Concomitant]
  5. DEPAKENE [Concomitant]
     Route: 048
  6. GABAPEN [Concomitant]
     Route: 048
  7. DIAZEPAM [Concomitant]
  8. DIAZEPAM [Concomitant]

REACTIONS (1)
  - PLATELET COUNT DECREASED [None]
